FAERS Safety Report 14264005 (Version 3)
Quarter: 2017Q4

REPORT INFORMATION
  Report Type: Report from Study
  Country: BR (occurrence: BR)
  Receive Date: 20171208
  Receipt Date: 20171215
  Transmission Date: 20180321
  Serious: Yes (Hospitalization, Other)
  Sender: FDA-Public Use
  Company Number: PHHY2017BR179635

PATIENT
  Age: 42 Year
  Sex: Female
  Weight: 74 kg

DRUGS (8)
  1. ENALAPRIL [Concomitant]
     Active Substance: ENALAPRIL
     Indication: PULMONARY THROMBOSIS
     Dosage: 1 DF (5 MG), QD
     Route: 048
  2. VARFARINA [Concomitant]
     Active Substance: WARFARIN SODIUM
     Indication: PULMONARY THROMBOSIS
     Dosage: 1.5 DF, QOD (1 TABLET IN ALTERNATE DAYS)
     Route: 048
  3. SIMVASTATIN. [Concomitant]
     Active Substance: SIMVASTATIN
     Indication: PULMONARY THROMBOSIS
     Dosage: 1 DF (40 MG), QD
     Route: 048
  4. LOSARTAN. [Concomitant]
     Active Substance: LOSARTAN
     Indication: HYPERTENSION
     Dosage: 1 DF (25 MG), QD
     Route: 048
  5. AAS [Concomitant]
     Active Substance: ASPIRIN
     Indication: MYOCARDIAL INFARCTION
     Dosage: 1 DF (1 MG), QD
     Route: 048
  6. COSENTYX [Suspect]
     Active Substance: SECUKINUMAB
     Dosage: UNK
     Route: 065
     Dates: start: 20171106
  7. COSENTYX [Suspect]
     Active Substance: SECUKINUMAB
     Indication: ANKYLOSING SPONDYLITIS
     Dosage: 150 MG, QMO (1 AMPOULE A MONTH)
     Route: 058
     Dates: start: 20170809
  8. FUROSEMIDE. [Concomitant]
     Active Substance: FUROSEMIDE
     Indication: SWELLING
     Dosage: 2 DF (40 MG), QD
     Route: 048

REACTIONS (9)
  - Fluid retention [Recovering/Resolving]
  - Myocardial infarction [Recovering/Resolving]
  - Cardiomegaly [Recovering/Resolving]
  - Pulmonary thrombosis [Recovering/Resolving]
  - Malaise [Recovering/Resolving]
  - Cardiopulmonary failure [Recovering/Resolving]
  - Hypertension [Recovering/Resolving]
  - Pulmonary fibrosis [Recovering/Resolving]
  - Pulmonary hypertension [Unknown]

NARRATIVE: CASE EVENT DATE: 2017
